FAERS Safety Report 4426880-1 (Version None)
Quarter: 2004Q3

REPORT INFORMATION
  Report Type: 
  Country: None (occurrence: None)
  Receive Date: 20040811
  Receipt Date: 20040729
  Transmission Date: 20050211
  Serious: Yes (Hospitalization, Other)
  Sender: FDA-Public Use
  Company Number: A211318

PATIENT
  Age: 1 Day
  Sex: Male
  Weight: 4.12 kg

DRUGS (1)
  1. ATARAX [Suspect]
     Indication: ANXIETY
     Dosage: 75 MG (25 MG, 3 IN 1 D), PLACENTAL

REACTIONS (9)
  - CAESAREAN SECTION [None]
  - CARDIAC MURMUR [None]
  - CONGENITAL ATRIAL SEPTAL DEFECT [None]
  - CONVULSION NEONATAL [None]
  - DRUG EXPOSURE DURING PREGNANCY [None]
  - DRUG WITHDRAWAL SYNDROME NEONATAL [None]
  - GRAND MAL CONVULSION [None]
  - HYPOTONIA NEONATAL [None]
  - TRICUSPID VALVE INCOMPETENCE [None]
